FAERS Safety Report 4491881-4 (Version None)
Quarter: 2004Q4

REPORT INFORMATION
  Report Type: 
  Country: None (occurrence: None)
  Receive Date: 20041101
  Receipt Date: 20041018
  Transmission Date: 20050328
  Serious: Yes (Hospitalization)
  Sender: FDA-Public Use
  Company Number: 206418

PATIENT
  Age: 39 Year
  Sex: Male
  Weight: 86.1834 kg

DRUGS (1)
  1. AVONEX [Suspect]
     Indication: MULTIPLE SCLEROSIS
     Dosage: 30 MCG QW IM
     Dates: start: 19980101

REACTIONS (3)
  - NERVE COMPRESSION [None]
  - SPINAL COLUMN STENOSIS [None]
  - SPINAL DISORDER [None]
